FAERS Safety Report 13390628 (Version 3)
Quarter: 2020Q1

REPORT INFORMATION
  Report Type: Report from Study
  Country: CA (occurrence: CA)
  Receive Date: 20170331
  Receipt Date: 20200220
  Transmission Date: 20200409
  Serious: Yes (Other)
  Sender: FDA-Public Use
  Company Number: CA-ROCHE-1886999

PATIENT
  Age: 33 Year
  Sex: Female
  Weight: 68 kg

DRUGS (17)
  1. ACTEMRA [Suspect]
     Active Substance: TOCILIZUMAB
     Route: 042
     Dates: start: 20150623, end: 20151013
  2. ACTEMRA [Suspect]
     Active Substance: TOCILIZUMAB
     Route: 042
     Dates: start: 20151112
  3. TYLENOL [Concomitant]
     Active Substance: ACETAMINOPHEN
     Indication: PREMEDICATION
     Route: 065
  4. GRAVOL [Concomitant]
     Active Substance: DIMENHYDRINATE
     Indication: PREMEDICATION
     Route: 042
     Dates: start: 20171215
  5. CYMBALTA [Concomitant]
     Active Substance: DULOXETINE HYDROCHLORIDE
  6. METHOTREXATE. [Concomitant]
     Active Substance: METHOTREXATE
  7. ACTEMRA [Suspect]
     Active Substance: TOCILIZUMAB
     Dosage: INFUSION NO. 34
     Route: 042
     Dates: start: 20170324
  8. SOLU-MEDROL [Concomitant]
     Active Substance: METHYLPREDNISOLONE SODIUM SUCCINATE
     Indication: PREMEDICATION
     Route: 042
     Dates: start: 20171215
  9. FOLIC ACID. [Concomitant]
     Active Substance: FOLIC ACID
  10. ACTEMRA [Suspect]
     Active Substance: TOCILIZUMAB
     Dosage: INFUSION NO. 33
     Route: 042
     Dates: start: 20170224
  11. ACTEMRA [Suspect]
     Active Substance: TOCILIZUMAB
     Indication: RHEUMATOID ARTHRITIS
     Dosage: INFUSION NO. 32
     Route: 042
     Dates: start: 20170127
  12. ACTEMRA [Suspect]
     Active Substance: TOCILIZUMAB
     Route: 042
     Dates: start: 20121030, end: 20121129
  13. COLCHICINE. [Concomitant]
     Active Substance: COLCHICINE
  14. SINGULAIR [Concomitant]
     Active Substance: MONTELUKAST SODIUM
  15. ACTEMRA [Suspect]
     Active Substance: TOCILIZUMAB
     Route: 042
     Dates: start: 20160603
  16. ACTEMRA [Suspect]
     Active Substance: TOCILIZUMAB
     Route: 042
     Dates: start: 20120223, end: 20121004
  17. LYRICA [Concomitant]
     Active Substance: PREGABALIN

REACTIONS (6)
  - Infusion related reaction [Unknown]
  - Urticaria [Recovered/Resolved]
  - Flushing [Recovered/Resolved]
  - Optic neuritis [Unknown]
  - Herpes zoster [Not Recovered/Not Resolved]
  - Pruritus [Recovered/Resolved]

NARRATIVE: CASE EVENT DATE: 20170127
